FAERS Safety Report 8260046-2 (Version None)
Quarter: 2012Q2

REPORT INFORMATION
  Report Type: 
  Country: None (occurrence: None)
  Receive Date: 20120404
  Receipt Date: 20120320
  Transmission Date: 20120825
  Serious: Yes (Other)
  Sender: FDA-Public Use
  Company Number: CH-WATSON-2012-05490

PATIENT
  Age: 29 Year
  Sex: Female

DRUGS (1)
  1. TERBINAFINE HCL [Suspect]
     Indication: ANTIFUNGAL TREATMENT
     Dosage: UNK
     Route: 065

REACTIONS (2)
  - AUTOIMMUNE HEPATITIS [None]
  - BILIARY CIRRHOSIS PRIMARY [None]
